FAERS Safety Report 17558505 (Version 2)
Quarter: 2020Q1

REPORT INFORMATION
  Report Type: Report from Study
  Country: US (occurrence: US)
  Receive Date: 20200318
  Receipt Date: 20200320
  Transmission Date: 20200409
  Serious: No
  Sender: FDA-Public Use
  Company Number: NVSC2020US074728

PATIENT
  Sex: Female

DRUGS (1)
  1. PROMACTA [Suspect]
     Active Substance: ELTROMBOPAG OLAMINE
     Indication: THROMBOCYTOPENIA
     Dosage: 50 MG, QD(ONCE DAILY)
     Route: 048

REACTIONS (3)
  - Pruritus [Recovered/Resolved]
  - Dry skin [Recovered/Resolved]
  - Alopecia [Not Recovered/Not Resolved]
